FAERS Safety Report 11409830 (Version 2)
Quarter: 2015Q4

REPORT INFORMATION
  Report Type: Spontaneous
  Country: US (occurrence: None)
  Receive Date: 20150820
  Receipt Date: 20151009
  Transmission Date: 20160304
  Serious: Yes (Other)
  Sender: FDA-Public Use
  Company Number: 1713747-2015-999262

PATIENT
  Age: 55 Year
  Sex: Male
  Weight: 100 kg

DRUGS (23)
  1. DELFLEX [Suspect]
     Active Substance: CALCIUM CHLORIDE\DEXTROSE MONOHYDRATE\MAGNESIUM CHLORIDE\SODIUM CHLORIDE\SODIUM LACTATE
     Indication: PERITONEAL DIALYSIS
     Route: 033
  2. PD SOLUTION [Concomitant]
  3. VITAMIN B12 [Concomitant]
     Active Substance: CYANOCOBALAMIN
  4. ALPHAGAN P [Concomitant]
     Active Substance: BRIMONIDINE TARTRATE
  5. ASPIRIN. [Concomitant]
     Active Substance: ASPIRIN
  6. FOLIC ACID. [Concomitant]
     Active Substance: FOLIC ACID
  7. ISINORPIL [Concomitant]
  8. DIAYVITE [Concomitant]
  9. LANTUS [Concomitant]
     Active Substance: INSULIN GLARGINE
  10. RENVELA [Concomitant]
     Active Substance: SEVELAMER CARBONATE
  11. CHOLECALCIFEROL [Concomitant]
     Active Substance: CHOLECALCIFEROL
  12. LISINOPRIL WITH QUININE [Concomitant]
  13. CO-Q 10 [Concomitant]
  14. PLAVIX [Concomitant]
     Active Substance: CLOPIDOGREL BISULFATE
  15. CYANOCOALAMIN [Concomitant]
  16. VITAMIN [Concomitant]
     Active Substance: VITAMINS
  17. LIBERTY SET [Concomitant]
  18. CRESTOR [Concomitant]
     Active Substance: ROSUVASTATIN CALCIUM
  19. VITAMIN D3 [Concomitant]
     Active Substance: CHOLECALCIFEROL
  20. FERROUS SULFATE [Concomitant]
     Active Substance: FERROUS SULFATE\FERROUS SULFATE, DRIED
  21. LEVOFLOXACIN. [Concomitant]
     Active Substance: LEVOFLOXACIN
  22. NOVOLOG [Concomitant]
     Active Substance: INSULIN ASPART
  23. TIMOLOL WITH BRIMONIDINE [Concomitant]

REACTIONS (1)
  - Peritonitis [None]

NARRATIVE: CASE EVENT DATE: 201507
